FAERS Safety Report 8953986 (Version 1)
Quarter: 2012Q4

REPORT INFORMATION
  Report Type: 
  Country: GB (occurrence: GB)
  Receive Date: 20121206
  Receipt Date: 20121206
  Transmission Date: 20130627
  Serious: Yes (Hospitalization)
  Sender: FDA-Public Use
  Company Number: GB-WATSON-2012-21348

PATIENT
  Age: 77 Year
  Sex: Male

DRUGS (1)
  1. SULFAMETHOXAZOLE-TRIMETHOPRIM [Suspect]
     Indication: NOCARDIOSIS
     Dosage: 1 DF, bid
     Route: 048
     Dates: start: 201210, end: 20121105

REACTIONS (1)
  - Hyponatraemia [Recovering/Resolving]
